FAERS Safety Report 9437371 (Version 1)
Quarter: 2013Q3

REPORT INFORMATION
  Report Type: Report from Study
  Country: MX (occurrence: MX)
  Receive Date: 20130802
  Receipt Date: 20130802
  Transmission Date: 20140515
  Serious: Yes (Other)
  Sender: FDA-Public Use
  Company Number: PHHY2012MX115279

PATIENT
  Age: 63 Year
  Sex: Male

DRUGS (3)
  1. EXFORGE HCT [Suspect]
     Indication: HYPERTENSION
     Dosage: 1 DF(160/5/12.5 MG), DAILY
     Route: 048
     Dates: start: 20101015
  2. ASPIRIN PROTECT [Concomitant]
     Indication: BLOOD PRESSURE
     Dosage: 1 DF, QD (NIGHT)
     Dates: start: 2007
  3. CONCOR [Concomitant]
     Indication: HYPERTENSION
     Dosage: 0.5 DF (UNK), QD (AT MORNING)
     Route: 065
     Dates: start: 2011

REACTIONS (3)
  - Palpitations [Not Recovered/Not Resolved]
  - Blood pressure increased [Not Recovered/Not Resolved]
  - Malaise [Not Recovered/Not Resolved]
